FAERS Safety Report 9013740 (Version 1)
Quarter: 2013Q1

REPORT INFORMATION
  Report Type: Spontaneous
  Country: US (occurrence: None)
  Receive Date: 20130108
  Receipt Date: 20130108
  Transmission Date: 20140127
  Serious: Yes (Other)
  Sender: FDA-Public Use
  Company Number: None

PATIENT
  Age: 85 Year
  Sex: Male
  Weight: 81.65 kg

DRUGS (1)
  1. DORZOLAMIDE/TIMOLOL [Suspect]
     Dosage: INSTILL 1 DROP IN EACH EYE TWICE A DAY

REACTIONS (3)
  - Foreign body sensation in eyes [None]
  - Eye pain [None]
  - Product quality issue [None]
